FAERS Safety Report 23022323 (Version 1)
Quarter: 2023Q4

REPORT INFORMATION
  Report Type: Spontaneous
  Country: BR (occurrence: BR)
  Receive Date: 20231003
  Receipt Date: 20231003
  Transmission Date: 20240109
  Serious: Yes (Other)
  Sender: FDA-Public Use
  Company Number: BR-TEVA BRAZIL-2023-BR-2931356

PATIENT

DRUGS (1)
  1. OXALIPLATIN [Suspect]
     Active Substance: OXALIPLATIN
     Indication: Product used for unknown indication
     Dosage: 50MG INJ
     Route: 065

REACTIONS (13)
  - Throat tightness [Unknown]
  - Flushing [Unknown]
  - Hypertension [Unknown]
  - Pruritus [Unknown]
  - Throat irritation [Unknown]
  - Chills [Unknown]
  - Hyperthermia [Unknown]
  - Cough [Unknown]
  - Hypoaesthesia oral [Unknown]
  - Dry mouth [Unknown]
  - Headache [Unknown]
  - Malaise [Unknown]
  - Hypoaesthesia [Unknown]

NARRATIVE: CASE EVENT DATE: 20230101
